FAERS Safety Report 4434734-X (Version None)
Quarter: 2004Q3

REPORT INFORMATION
  Report Type: 
  Country: None (occurrence: None)
  Receive Date: 20040827
  Receipt Date: 20040615
  Transmission Date: 20050211
  Serious: No
  Sender: FDA-Public Use
  Company Number: US-BRISTOL-MYERS SQUIBB COMPANY-12616470

PATIENT
  Age: 66 Year
  Sex: Male

DRUGS (1)
  1. DEFINITY [Suspect]
     Indication: ECHOCARDIOGRAM
     Dosage: BOLUS
     Dates: start: 20040615

REACTIONS (3)
  - CHEST PAIN [None]
  - FEELING ABNORMAL [None]
  - FLUSHING [None]
